FAERS Safety Report 15027447 (Version 1)
Quarter: 2018Q2

REPORT INFORMATION
  Report Type: Spontaneous
  Country: IN (occurrence: IN)
  Receive Date: 20180619
  Receipt Date: 20180619
  Transmission Date: 20180711
  Serious: Yes (Hospitalization, Other)
  Sender: FDA-Public Use
  Company Number: IN-ACCORD-068423

PATIENT
  Age: 4 Month
  Sex: Male

DRUGS (1)
  1. LEVETIRACETAM. [Suspect]
     Active Substance: LEVETIRACETAM
     Indication: SEIZURE
     Dosage: FIRST-LINE MONOTHERAPY

REACTIONS (7)
  - Pancytopenia [Unknown]
  - Hyponatraemia [Unknown]
  - Pneumonia [Unknown]
  - Umbilical hernia [Unknown]
  - Acute kidney injury [Unknown]
  - Septic shock [Unknown]
  - Multiple organ dysfunction syndrome [Unknown]
